FAERS Safety Report 6663304-8 (Version None)
Quarter: 2010Q1

REPORT INFORMATION
  Report Type: 
  Country: None (occurrence: None)
  Receive Date: 20100331
  Receipt Date: 20100331
  Transmission Date: 20100710
  Serious: Yes (Hospitalization)
  Sender: FDA-Public Use
  Company Number: None

PATIENT
  Age: 60 Year
  Sex: Male
  Weight: 131.1 kg

DRUGS (2)
  1. LISINOPRIL [Suspect]
     Indication: HYPERTENSION
     Dosage: 20 MG HS PO
     Route: 048
     Dates: start: 20090608, end: 20091214
  2. FUROSEMIDE [Suspect]
     Indication: CARDIAC FAILURE CONGESTIVE
     Dosage: 40 MG AM PO
     Route: 048
     Dates: start: 20090902, end: 20091204

REACTIONS (2)
  - HYPERKALAEMIA [None]
  - RENAL FAILURE [None]
